FAERS Safety Report 10136323 (Version 3)
Quarter: 2014Q2

REPORT INFORMATION
  Report Type: Spontaneous
  Country: DE (occurrence: DE)
  Receive Date: 20140429
  Receipt Date: 20140612
  Transmission Date: 20141212
  Serious: Yes (Other)
  Sender: FDA-Public Use
  Company Number: DE-BAYER-2014-059408

PATIENT
  Age: 52 Year
  Sex: Female
  Weight: 57 kg

DRUGS (7)
  1. BETAFERON [Suspect]
     Indication: MULTIPLE SCLEROSIS
     Dosage: UNK, QOD
     Dates: start: 201211
  2. METAMIZOL [Concomitant]
     Indication: MULTIPLE SCLEROSIS
     Dosage: 1 TABLET METAMIZOL TAKEN WITH EVERY BETAFERON INJECTION
     Dates: start: 201211
  3. METOPROLOL SUCCINATE [Concomitant]
     Dosage: 23.75 MG, BID
     Dates: start: 20140311, end: 20140416
  4. METOPROLOL SUCCINATE [Concomitant]
     Dosage: 23.75 MG, QD
     Dates: start: 20140417, end: 20140501
  5. CARBIMAZOL [Concomitant]
     Indication: THYREOSTATIC THERAPY
     Dosage: 40 MG, UNK
     Dates: start: 20140311, end: 20140317
  6. CARBIMAZOL [Concomitant]
     Indication: THYREOSTATIC THERAPY
     Dosage: 20 MG, UNK
     Dates: start: 20140318
  7. CARBIMAZOL [Concomitant]
     Indication: THYREOSTATIC THERAPY
     Dosage: 10 MG, UNK

REACTIONS (6)
  - Basedow^s disease [Recovered/Resolved]
  - Hyperthyroidism [Recovered/Resolved]
  - Skin reaction [None]
  - Liver function test abnormal [Recovering/Resolving]
  - Heart rate increased [Recovered/Resolved]
  - Blood pressure systolic increased [Recovered/Resolved]
